FAERS Safety Report 4408034-8 (Version None)
Quarter: 2004Q3

REPORT INFORMATION
  Report Type: 
  Country: None (occurrence: None)
  Receive Date: 20040721
  Receipt Date: 20040707
  Transmission Date: 20050211
  Serious: Yes (Death)
  Sender: FDA-Public Use
  Company Number: EWC040639562

PATIENT
  Age: 75 Year
  Sex: Male
  Weight: 62 kg

DRUGS (3)
  1. OLANZAPINE [Suspect]
     Indication: SCHIZOPHRENIA
     Dosage: 15 MG/1 DAY
     Route: 048
     Dates: start: 20030303
  2. DEPAKIN                       (VALPROATE SODIUM) [Concomitant]
  3. RIVOTRIL          (CLONAZEPAM) [Concomitant]

REACTIONS (3)
  - INFECTED SKIN ULCER [None]
  - RED BLOOD CELL COUNT DECREASED [None]
  - SEPSIS [None]
